FAERS Safety Report 12242425 (Version 2)
Quarter: 2016Q2

REPORT INFORMATION
  Report Type: Report from Study
  Country: BR (occurrence: BR)
  Receive Date: 20160406
  Receipt Date: 20160406
  Transmission Date: 20160815
  Serious: Yes (Hospitalization)
  Sender: FDA-Public Use
  Company Number: PHHY2016BR043765

PATIENT
  Sex: Male
  Weight: 78 kg

DRUGS (2)
  1. AMLODIPINE [Suspect]
     Active Substance: AMLODIPINE BESYLATE
     Indication: CARDIAC DISORDER
     Route: 065
  2. DIOVAN HCT [Suspect]
     Active Substance: HYDROCHLOROTHIAZIDE\VALSARTAN
     Indication: CARDIAC DISORDER
     Dosage: 1 DF, QD,  (VALSARTAN 320 MG, HYDROCHLOROTHIAZIDE 12.5 MG)
     Route: 048

REACTIONS (4)
  - Oedema peripheral [Unknown]
  - Peripheral swelling [Recovered/Resolved]
  - Discomfort [Unknown]
  - Product use issue [Unknown]
